FAERS Safety Report 17685959 (Version 1)
Quarter: 2020Q2

REPORT INFORMATION
  Report Type: Spontaneous
  Country: FR (occurrence: FR)
  Receive Date: 20200420
  Receipt Date: 20200420
  Transmission Date: 20200714
  Serious: Yes (Hospitalization)
  Sender: FDA-Public Use
  Company Number: FR-MYLANLABS-2020M1039157

PATIENT
  Age: 66 Year
  Sex: Female

DRUGS (6)
  1. AZITHROMYCIN ANHYDROUS. [Suspect]
     Active Substance: AZITHROMYCIN ANHYDROUS
     Indication: INFECTION
     Dosage: 500 MILLIGRAM, QD
     Route: 048
     Dates: start: 20200217, end: 20200219
  2. AMOXICILLINE                       /00249601/ [Concomitant]
     Active Substance: AMOXICILLIN
  3. COAPROVEL [Suspect]
     Active Substance: HYDROCHLOROTHIAZIDE\IRBESARTAN
     Indication: HYPERTENSION
     Dosage: 1 DOSAGE FORM, QD
     Route: 048
     Dates: end: 20200228
  4. XARELTO [Concomitant]
     Active Substance: RIVAROXABAN
  5. NEBIVOLOL. [Concomitant]
     Active Substance: NEBIVOLOL
  6. UVEDOSE [Concomitant]
     Active Substance: CHOLECALCIFEROL

REACTIONS (1)
  - Hyponatraemia [Recovering/Resolving]

NARRATIVE: CASE EVENT DATE: 202002
